FAERS Safety Report 7520547-9 (Version None)
Quarter: 2011Q2

REPORT INFORMATION
  Report Type: 
  Country: None (occurrence: None)
  Receive Date: 20110602
  Receipt Date: 20110527
  Transmission Date: 20111010
  Serious: Yes (Hospitalization, Other)
  Sender: FDA-Public Use
  Company Number: PHHO2011FR09127

PATIENT
  Sex: Male
  Weight: 32.4 kg

DRUGS (4)
  1. PLACEBO [Suspect]
     Indication: JUVENILE ARTHRITIS
     Dosage: UNK
  2. BLINDED ACZ885 [Suspect]
     Indication: JUVENILE ARTHRITIS
     Dosage: UNK
  3. BLINDED NO TREATMENT RECEIVED [Suspect]
     Indication: JUVENILE ARTHRITIS
     Dosage: UNK
  4. ILARIS [Suspect]
     Indication: JUVENILE ARTHRITIS
     Dosage: 4 MG/KG, EVERY 4 WEEKS
     Route: 058
     Dates: start: 20090915

REACTIONS (3)
  - PAIN IN EXTREMITY [None]
  - RHINITIS [None]
  - LYMPHADENOPATHY [None]
